FAERS Safety Report 6448421-X (Version None)
Quarter: 2009Q4

REPORT INFORMATION
  Report Type: 
  Country: None (occurrence: None)
  Receive Date: 20091117
  Receipt Date: 20091109
  Transmission Date: 20100525
  Serious: Yes (Death)
  Sender: FDA-Public Use
  Company Number: 2009EU004283

PATIENT
  Age: 44 Year
  Sex: Male

DRUGS (3)
  1. TACROLIMUS [Suspect]
     Indication: CHRONIC GRAFT VERSUS HOST DISEASE
  2. CORTICOSTEROIDS () [Suspect]
     Indication: CHRONIC GRAFT VERSUS HOST DISEASE
  3. MYCOPHENOLATE MOFETIL [Suspect]
     Indication: CHRONIC GRAFT VERSUS HOST DISEASE

REACTIONS (4)
  - GENERAL PHYSICAL HEALTH DETERIORATION [None]
  - GINGIVAL ABSCESS [None]
  - MULTI-ORGAN FAILURE [None]
  - SYSTEMIC MYCOSIS [None]
